FAERS Safety Report 7574339-5 (Version None)
Quarter: 2011Q2

REPORT INFORMATION
  Report Type: 
  Country: None (occurrence: None)
  Receive Date: 20110627
  Receipt Date: 20110615
  Transmission Date: 20111010
  Serious: Yes (Other)
  Sender: FDA-Public Use
  Company Number: JP-MERCK-1106USA02698

PATIENT
  Age: 76 Year
  Sex: Male

DRUGS (14)
  1. SINEMET [Suspect]
     Dosage: DIVIDED DOSE FREQUENCY U
     Route: 048
     Dates: start: 19970101, end: 19980601
  2. BROMOCRIPTINE MESYLATE [Concomitant]
     Indication: PARKINSON'S DISEASE
     Dosage: DIVIDED DOSE FRECUENCY U
     Route: 048
     Dates: start: 19990901
  3. CABERGOLINE [Concomitant]
     Indication: PARKINSON'S DISEASE
     Dosage: DIVIDED DOSE FRECUENCY U
     Route: 048
     Dates: start: 20021001, end: 20040201
  4. CABERGOLINE [Concomitant]
     Dosage: DIVIDED DOSE FRECUENCY U
     Route: 048
     Dates: start: 20040201, end: 20051001
  5. SINEMET [Suspect]
     Dosage: DIVIDED DOSE FREQUENCY U
     Route: 048
     Dates: start: 19980601, end: 19980701
  6. SINEMET [Suspect]
     Dosage: DIVIDED DOSE FREQUENCY U
     Route: 048
     Dates: start: 20040201
  7. SINEMET [Suspect]
     Dosage: DIVIDED DOSE FREQUENCY U
     Route: 048
     Dates: start: 20050101
  8. TREMIN [Suspect]
     Indication: PARKINSON'S DISEASE
     Dosage: DIVIDED DOSE FRECUANCY U
     Route: 048
     Dates: start: 19980801, end: 19980801
  9. SINEMET [Suspect]
     Indication: PARKINSON'S DISEASE
     Dosage: DIVIDED DOSE FREQUENCY U
     Route: 048
     Dates: start: 19980701, end: 19980801
  10. SINEMET [Suspect]
     Dosage: DIVIDED DOSE FREQUENCY U
     Route: 048
     Dates: start: 19980801, end: 19980801
  11. PERGOLIDE MESYLATE [Concomitant]
     Dosage: DIVIDED DOSE FRECUENCY U
     Route: 048
     Dates: start: 19980701, end: 19980801
  12. AMANTADINE HYDROCHLORIDE [Concomitant]
     Indication: PARKINSON'S DISEASE
     Route: 048
     Dates: start: 19980801
  13. SINEMET [Suspect]
     Dosage: DIVIDED DOSE FREQUENCY U
     Route: 048
     Dates: start: 20040101, end: 20050101
  14. PERGOLIDE MESYLATE [Concomitant]
     Indication: PARKINSON'S DISEASE
     Dosage: DIVIDED DOSE FRECUENCY U
     Route: 048
     Dates: start: 19980601, end: 19980701

REACTIONS (4)
  - DELUSION [None]
  - HALLUCINATION [None]
  - PERSECUTORY DELUSION [None]
  - ABNORMAL BEHAVIOUR [None]
